FAERS Safety Report 6143088-2 (Version None)
Quarter: 2009Q2

REPORT INFORMATION
  Report Type: 
  Country: None (occurrence: None)
  Receive Date: 20090403
  Receipt Date: 20090323
  Transmission Date: 20091009
  Serious: Yes (Other)
  Sender: FDA-Public Use
  Company Number: PHHY2009IT11865

PATIENT
  Sex: Male

DRUGS (1)
  1. RASILEZ [Suspect]
     Indication: HYPERTENSION
     Dosage: 150 MG, QD
     Route: 048
     Dates: start: 20090321, end: 20090323

REACTIONS (4)
  - AGITATION [None]
  - HALLUCINATION, VISUAL [None]
  - INSOMNIA [None]
  - TACHYCARDIA [None]
